FAERS Safety Report 4674383-1 (Version None)
Quarter: 2005Q2

REPORT INFORMATION
  Report Type: 
  Country: None (occurrence: None)
  Receive Date: 20050524
  Receipt Date: 20050512
  Transmission Date: 20051028
  Serious: Yes (Other)
  Sender: FDA-Public Use
  Company Number: 2005US-00533

PATIENT
  Age: 63 Year
  Sex: Male

DRUGS (1)
  1. QUINAPRIL HCL [Suspect]
     Dosage: ORAL
     Route: 048
     Dates: start: 20050207, end: 20050209

REACTIONS (3)
  - ANAPHYLACTIC SHOCK [None]
  - CHOKING [None]
  - SWOLLEN TONGUE [None]
